FAERS Safety Report 5723583-8 (Version None)
Quarter: 2008Q2

REPORT INFORMATION
  Report Type: 
  Country: None (occurrence: None)
  Receive Date: 20080430
  Receipt Date: 20080429
  Transmission Date: 20081010
  Serious: Yes (Life-Threatening, Disabling)
  Sender: FDA-Public Use
  Company Number: B0518677A

PATIENT
  Age: 44 Year
  Sex: Male
  Weight: 70 kg

DRUGS (3)
  1. SEROXAT [Suspect]
     Dosage: 30MG PER DAY
     Route: 048
     Dates: end: 20050501
  2. CITALOPRAM HYDROBROMIDE [Concomitant]
     Dosage: 10MG PER DAY
     Route: 048
     Dates: start: 20060301
  3. AMITRIPTLINE HCL [Concomitant]
     Indication: SLEEP DISORDER
     Dosage: 10MG PER DAY
     Route: 048
     Dates: start: 20051101, end: 20060301

REACTIONS (9)
  - EYE PAIN [None]
  - GAIT DISTURBANCE [None]
  - NECK PAIN [None]
  - PAIN IN EXTREMITY [None]
  - PANIC ATTACK [None]
  - SUICIDAL IDEATION [None]
  - TREMOR [None]
  - VITREOUS FLOATERS [None]
  - WITHDRAWAL SYNDROME [None]
